FAERS Safety Report 7842214-4 (Version None)
Quarter: 2011Q4

REPORT INFORMATION
  Report Type: 
  Country: None (occurrence: None)
  Receive Date: 20111024
  Receipt Date: 20111024
  Transmission Date: 20120403
  Serious: Yes (Other)
  Sender: FDA-Public Use
  Company Number: None

PATIENT
  Sex: Male
  Weight: 72.5755 kg

DRUGS (1)
  1. LIPITOR [Suspect]
     Indication: BLOOD CHOLESTEROL
     Dosage: 40MG. DAILY ORAL
     Route: 048

REACTIONS (4)
  - PHARYNGEAL OEDEMA [None]
  - DYSPNOEA [None]
  - LYMPHADENOPATHY [None]
  - PRURITUS GENERALISED [None]
